FAERS Safety Report 4910505-2 (Version None)
Quarter: 2006Q1

REPORT INFORMATION
  Report Type: 
  Country: None (occurrence: None)
  Receive Date: 20060209
  Receipt Date: 20060131
  Transmission Date: 20060701
  Serious: Yes (Hospitalization)
  Sender: FDA-Public Use
  Company Number: 2006-CZ-00567

PATIENT
  Age: 55 Year
  Sex: Male

DRUGS (3)
  1. DIAZEPAM [Suspect]
     Dosage: 5 MG BID/PRN, ORAL
     Route: 048
  2. HALOPERIDOL TABLETS 20 MG (HALOPERIDOL) [Suspect]
     Dosage: 3.3333 MG, 1 IN 1 M, INTRAMUSCULAR
     Route: 030
  3. CLOZAPINE [Suspect]
     Indication: SCHIZOPHRENIA
     Dosage: 300 MG, 1 IN 1 D, ORAL
     Route: 048
     Dates: start: 20050408, end: 20051222

REACTIONS (6)
  - COMA [None]
  - GRAND MAL CONVULSION [None]
  - LUNG INFECTION [None]
  - MENINGITIS PNEUMOCOCCAL [None]
  - STAPHYLOCOCCAL INFECTION [None]
  - WOUND INFECTION STAPHYLOCOCCAL [None]
